FAERS Safety Report 8270951-9 (Version None)
Quarter: 2012Q2

REPORT INFORMATION
  Report Type: 
  Country: None (occurrence: None)
  Receive Date: 20120406
  Receipt Date: 20120323
  Transmission Date: 20120825
  Serious: Yes (Hospitalization)
  Sender: FDA-Public Use
  Company Number: 2012000061

PATIENT
  Age: 62 Year
  Sex: Male

DRUGS (3)
  1. VALPROATE SODIUM [Suspect]
     Indication: PRODUCT USED FOR UNKNOWN INDICATION
  2. ACEON [Suspect]
     Indication: PRODUCT USED FOR UNKNOWN INDICATION
  3. CLOZARIL [Suspect]
     Indication: PRODUCT USED FOR UNKNOWN INDICATION
     Dosage: 300 MG

REACTIONS (4)
  - FALL [None]
  - CELLULITIS [None]
  - RENAL FAILURE [None]
  - DRUG INTERACTION [None]
